FAERS Safety Report 11889599 (Version 2)
Quarter: 2016Q1

REPORT INFORMATION
  Report Type: Report from Study
  Country: BR (occurrence: BR)
  Receive Date: 20160105
  Receipt Date: 20160223
  Transmission Date: 20160526
  Serious: Yes (Other)
  Sender: FDA-Public Use
  Company Number: BR-ABBVIE-15K-020-1530459-00

PATIENT
  Age: 41 Year
  Sex: Female
  Weight: 80 kg

DRUGS (9)
  1. TRAMADOL. [Concomitant]
     Active Substance: TRAMADOL
     Indication: ANKYLOSING SPONDYLITIS
  2. GABAPENTIN. [Concomitant]
     Active Substance: GABAPENTIN
     Indication: FIBROMYALGIA
     Route: 048
     Dates: start: 2013
  3. HUMIRA [Suspect]
     Active Substance: ADALIMUMAB
     Indication: ANKYLOSING SPONDYLITIS
     Route: 058
     Dates: start: 20131001, end: 201601
  4. TRAMADOL. [Concomitant]
     Active Substance: TRAMADOL
     Indication: FIBROMYALGIA
     Route: 048
     Dates: start: 2010
  5. AMITRIPTYLINE [Concomitant]
     Active Substance: AMITRIPTYLINE
     Indication: FIBROMYALGIA
     Route: 048
     Dates: start: 2014
  6. TRAMAL [Concomitant]
     Active Substance: TRAMADOL
     Route: 030
     Dates: end: 20160105
  7. TRAMAL [Concomitant]
     Active Substance: TRAMADOL
     Indication: PAIN
     Route: 042
  8. KETOPROFEN. [Concomitant]
     Active Substance: KETOPROFEN
     Indication: PAIN
     Route: 042
  9. KETOPROFEN. [Concomitant]
     Active Substance: KETOPROFEN
     Route: 030
     Dates: end: 20160105

REACTIONS (13)
  - Syncope [Recovering/Resolving]
  - Fatigue [Unknown]
  - Constipation [Unknown]
  - Constipation [Recovering/Resolving]
  - Arthritis [Unknown]
  - Seizure [Unknown]
  - Hypertension [Not Recovered/Not Resolved]
  - Bladder dilatation [Recovered/Resolved]
  - Insomnia [Unknown]
  - Epilepsy [Recovering/Resolving]
  - Blood pressure abnormal [Unknown]
  - Ankylosing spondylitis [Recovered/Resolved]
  - Urinary tract infection [Not Recovered/Not Resolved]

NARRATIVE: CASE EVENT DATE: 2014
